FAERS Safety Report 19333082 (Version 1)
Quarter: 2021Q2

REPORT INFORMATION
  Report Type: Report from Study
  Country: CA (occurrence: CA)
  Receive Date: 20210529
  Receipt Date: 20210529
  Transmission Date: 20210717
  Serious: Yes (Other)
  Sender: FDA-Public Use
  Company Number: CA-UCBSA-2021024751

PATIENT
  Age: 39 Year
  Sex: Female

DRUGS (7)
  1. BRIVARACETAM EP [Suspect]
     Active Substance: BRIVARACETAM
     Indication: EPILEPSY
     Dosage: 50 MILLIGRAM, 2X/DAY (BID)
     Route: 048
  2. BRIVARACETAM EP [Suspect]
     Active Substance: BRIVARACETAM
     Indication: HIPPOCAMPAL SCLEROSIS
  3. BRIVARACETAM EP [Suspect]
     Active Substance: BRIVARACETAM
     Indication: GENERALISED TONIC-CLONIC SEIZURE
  4. BRIVARACETAM EP [Suspect]
     Active Substance: BRIVARACETAM
     Indication: FOCAL DYSCOGNITIVE SEIZURES
  5. BRIVARACETAM EP [Suspect]
     Active Substance: BRIVARACETAM
     Indication: PARTIAL SEIZURES
  6. FOLIC ACID. [Concomitant]
     Active Substance: FOLIC ACID
     Indication: PRODUCT USED FOR UNKNOWN INDICATION
     Dosage: UNK
  7. BRIVARACETAM EP [Suspect]
     Active Substance: BRIVARACETAM
     Indication: OFF LABEL USE

REACTIONS (4)
  - Uterine leiomyoma [Not Recovered/Not Resolved]
  - Seizure [Recovered/Resolved]
  - Infertility [Not Recovered/Not Resolved]
  - Off label use [Unknown]

NARRATIVE: CASE EVENT DATE: 202007
